FAERS Safety Report 15543896 (Version 1)
Quarter: 2018Q4

REPORT INFORMATION
  Report Type: Spontaneous
  Country: US (occurrence: US)
  Receive Date: 20181023
  Receipt Date: 20181023
  Transmission Date: 20190205
  Serious: Yes (Hospitalization, Other)
  Sender: FDA-Public Use
  Company Number: US-GILEAD-2018-0349450

PATIENT
  Sex: Male
  Weight: 103 kg

DRUGS (9)
  1. ZOFRAN [Concomitant]
     Active Substance: ONDANSETRON HYDROCHLORIDE
  2. FLUDARABINE [Suspect]
     Active Substance: FLUDARABINE PHOSPHATE
     Indication: BONE MARROW CONDITIONING REGIMEN
     Dosage: 30 MG/M2, QD
     Route: 042
     Dates: start: 20180613, end: 20180615
  3. PRILOSEC [Concomitant]
     Active Substance: OMEPRAZOLE MAGNESIUM
  4. CLARITIN [Concomitant]
     Active Substance: LORATADINE
  5. KEPPRA [Concomitant]
     Active Substance: LEVETIRACETAM
  6. CYTOXAN [Suspect]
     Active Substance: CYCLOPHOSPHAMIDE
     Indication: BONE MARROW CONDITIONING REGIMEN
     Dosage: 500 MG/M2, QD
     Route: 042
     Dates: start: 20180613, end: 20180615
  7. YESCARTA [Suspect]
     Active Substance: AXICABTAGENE CILOLEUCEL
     Indication: DIFFUSE LARGE B-CELL LYMPHOMA REFRACTORY
     Dosage: UNK, ONCE
     Route: 042
     Dates: start: 20180618, end: 20180618
  8. VITAMIN B6 [Concomitant]
     Active Substance: PYRIDOXINE HYDROCHLORIDE
  9. NYDRAZID [Concomitant]
     Active Substance: ISONIAZID

REACTIONS (10)
  - Dysuria [Unknown]
  - Pyrexia [Not Recovered/Not Resolved]
  - Hyperhidrosis [Unknown]
  - Cytokine release syndrome [Recovered/Resolved]
  - Micturition urgency [Unknown]
  - Chills [Unknown]
  - Cough [Unknown]
  - Pollakiuria [Unknown]
  - Malaise [Unknown]
  - Fatigue [Unknown]

NARRATIVE: CASE EVENT DATE: 20180622
